FAERS Safety Report 11215495 (Version 1)
Quarter: 2015Q2

REPORT INFORMATION
  Report Type: Spontaneous
  Country: US (occurrence: US)
  Receive Date: 20150624
  Receipt Date: 20150624
  Transmission Date: 20150821
  Serious: No
  Sender: FDA-Public Use
  Company Number: US-MYLANLABS-2014S1015337

PATIENT
  Sex: Female

DRUGS (8)
  1. METOPROLOL [Concomitant]
     Active Substance: METOPROLOL
     Dosage: 25 MG,QD
     Route: 048
  2. VALACICLOVIR [Suspect]
     Active Substance: VALACYCLOVIR HYDROCHLORIDE
     Dosage: 500 MG,QD
     Route: 048
     Dates: start: 201106
  3. OMEPRAZOLE. [Concomitant]
     Active Substance: OMEPRAZOLE
     Dosage: 20 MG,QD
     Route: 048
  4. ZOLPIDEM [Concomitant]
     Active Substance: ZOLPIDEM\ZOLPIDEM TARTRATE
     Dosage: 10 MG,HS
     Route: 048
  5. ESTRADIOL TRANSDERMAL SYSTEM [Concomitant]
     Active Substance: ESTRADIOL
     Dosage: .05 MG,QD
     Route: 062
  6. LYRICA [Concomitant]
     Active Substance: PREGABALIN
     Dosage: 25 MG,TID
     Route: 048
  7. TRAMADOL [Concomitant]
     Active Substance: TRAMADOL
     Dosage: 50 MG,TID
     Route: 048
  8. AMLODIPINE [Concomitant]
     Active Substance: AMLODIPINE BESYLATE
     Dosage: 2.5 MG,QD
     Route: 048

REACTIONS (1)
  - Lip swelling [Not Recovered/Not Resolved]

NARRATIVE: CASE EVENT DATE: 20140618
